FAERS Safety Report 4735967-5 (Version None)
Quarter: 2005Q3

REPORT INFORMATION
  Report Type: 
  Country: None (occurrence: None)
  Receive Date: 20050805
  Receipt Date: 20050617
  Transmission Date: 20060218
  Serious: Yes (Other)
  Sender: FDA-Public Use
  Company Number: ZA-MERCK-0506ZAF00014

PATIENT
  Age: 56 Year
  Sex: Female
  Weight: 66 kg

DRUGS (2)
  1. ZETIA [Suspect]
     Indication: HYPERCHOLESTEROLAEMIA
     Route: 048
     Dates: start: 20050506, end: 20050617
  2. CYPROTERONE ACETATE AND ESTRADIOL VALERATE [Concomitant]
     Indication: POSTMENOPAUSE
     Route: 048

REACTIONS (2)
  - MEMORY IMPAIRMENT [None]
  - WEIGHT INCREASED [None]
